FAERS Safety Report 9696755 (Version 2)
Quarter: 2015Q3

REPORT INFORMATION
  Report Type: Spontaneous
  Country: US (occurrence: US)
  Receive Date: 20131119
  Receipt Date: 20150803
  Transmission Date: 20151125
  Serious: No
  Sender: FDA-Public Use
  Company Number: US-GILEAD-2007-0014635

PATIENT
  Sex: Female
  Weight: 124.74 kg

DRUGS (11)
  1. LETAIRIS [Suspect]
     Active Substance: AMBRISENTAN
     Indication: PULMONARY ARTERIAL HYPERTENSION
     Route: 048
     Dates: end: 20071214
  2. NAPROSYN [Concomitant]
     Active Substance: NAPROXEN
     Dosage: UD
     Route: 048
  3. ADVANCED CALCIUM [Concomitant]
     Dosage: UD
     Route: 048
  4. POTASSIUM CHLORIDE. [Concomitant]
     Active Substance: POTASSIUM CHLORIDE
  5. COMPLETE MULTIVITAMIN [Concomitant]
     Active Substance: VITAMINS
     Dosage: UD
     Route: 048
  6. PLAQUENIL [Concomitant]
     Active Substance: HYDROXYCHLOROQUINE SULFATE
     Dosage: UD
     Route: 048
  7. DILTIAZEM HYDROCHLORIDE EXTENDED RELEASE [Concomitant]
     Active Substance: DILTIAZEM HYDROCHLORIDE
     Dosage: UD
     Route: 048
  8. TYLENOL ARTHRITIS PAIN [Concomitant]
     Active Substance: ACETAMINOPHEN
     Dosage: UD
     Route: 048
  9. LASIX [Concomitant]
     Active Substance: FUROSEMIDE
     Dosage: UD
  10. ACTONEL [Concomitant]
     Active Substance: RISEDRONATE SODIUM
     Dosage: UD
     Route: 048
  11. IMMUNE GLOBULIN [Concomitant]
     Active Substance: HUMAN IMMUNOGLOBULIN G
     Dosage: UD
     Route: 048

REACTIONS (2)
  - Peripheral swelling [Unknown]
  - Dyspnoea [Unknown]
